FAERS Safety Report 17272952 (Version 4)
Quarter: 2020Q3

REPORT INFORMATION
  Report Type: Spontaneous
  Country: US (occurrence: US)
  Receive Date: 20200115
  Receipt Date: 20200818
  Transmission Date: 20201102
  Serious: Yes (Hospitalization)
  Sender: FDA-Public Use
  Company Number: US-PFIZER INC-2018352158

PATIENT
  Age: 75 Year
  Sex: Female

DRUGS (1)
  1. IBRANCE [Suspect]
     Active Substance: PALBOCICLIB
     Indication: BREAST CANCER FEMALE
     Dosage: 125 MG

REACTIONS (4)
  - Urinary tract infection [Unknown]
  - Pollakiuria [Unknown]
  - Renal disorder [Unknown]
  - Dysgraphia [Unknown]
